FAERS Safety Report 6966697-7 (Version None)
Quarter: 2010Q3

REPORT INFORMATION
  Report Type: 
  Country: None (occurrence: None)
  Receive Date: 20100906
  Receipt Date: 20100831
  Transmission Date: 20110219
  Serious: No
  Sender: FDA-Public Use
  Company Number: US-BIOGENIDEC-2010BI030071

PATIENT
  Age: 46 Year
  Sex: Male

DRUGS (4)
  1. AVONEX [Suspect]
     Indication: MULTIPLE SCLEROSIS
     Route: 030
     Dates: start: 20100823
  2. AVONEX [Suspect]
     Route: 030
     Dates: start: 20100803, end: 20100803
  3. AVONEX [Suspect]
     Route: 030
     Dates: start: 20100809, end: 20100809
  4. AVONEX [Suspect]
     Route: 030
     Dates: start: 20100816, end: 20100816

REACTIONS (3)
  - INFLUENZA LIKE ILLNESS [None]
  - TREMOR [None]
  - VOMITING [None]
